FAERS Safety Report 7355789-9 (Version None)
Quarter: 2011Q1

REPORT INFORMATION
  Report Type: 
  Country: None (occurrence: None)
  Receive Date: 20110316
  Receipt Date: 20110308
  Transmission Date: 20110831
  Serious: Yes (Other)
  Sender: FDA-Public Use
  Company Number: US-US-EMD SERONO, INC.-231292J10USA

PATIENT
  Sex: Female
  Weight: 59 kg

DRUGS (3)
  1. SYNTHROID [Concomitant]
     Indication: AUTOIMMUNE THYROIDITIS
  2. REBIF [Suspect]
     Indication: MULTIPLE SCLEROSIS
     Route: 058
     Dates: start: 20090812, end: 20090901
  3. NUVARING [Concomitant]
     Indication: CONTRACEPTION
     Dates: end: 20110101

REACTIONS (2)
  - INJECTION SITE PAIN [None]
  - AUTOIMMUNE THYROIDITIS [None]
